FAERS Safety Report 7990073-1 (Version None)
Quarter: 2011Q4

REPORT INFORMATION
  Report Type: 
  Country: None (occurrence: None)
  Receive Date: 20111219
  Receipt Date: 20111011
  Transmission Date: 20120403
  Serious: No
  Sender: FDA-Public Use
  Company Number: US-ASTRAZENECA-2011SE61026

PATIENT
  Age: 67 Year
  Sex: Female
  Weight: 63 kg

DRUGS (10)
  1. IMITREX [Concomitant]
     Indication: MIGRAINE
  2. NIACIN [Concomitant]
  3. FISH OIL [Concomitant]
  4. SOYABEAN [Concomitant]
  5. CRESTOR [Suspect]
     Route: 048
  6. PAXIL [Concomitant]
     Indication: STRESS
  7. CREST OFF [Concomitant]
  8. FLEXI OIL [Concomitant]
  9. CRESTOR [Suspect]
     Indication: HYPERCHOLESTEROLAEMIA
     Route: 048
  10. CHROMIUM POTASSIUM [Concomitant]

REACTIONS (3)
  - BACK PAIN [None]
  - WRONG TECHNIQUE IN DRUG USAGE PROCESS [None]
  - INAPPROPRIATE SCHEDULE OF DRUG ADMINISTRATION [None]
